FAERS Safety Report 6683672-0 (Version None)
Quarter: 2010Q2

REPORT INFORMATION
  Report Type: 
  Country: None (occurrence: None)
  Receive Date: 20100416
  Receipt Date: 20100409
  Transmission Date: 20101027
  Serious: Yes (Other)
  Sender: FDA-Public Use
  Company Number: US-BIOGENIDEC-2010BI007355

PATIENT
  Age: 49 Year
  Sex: Female
  Weight: 77 kg

DRUGS (3)
  1. AVONEX [Suspect]
     Indication: MULTIPLE SCLEROSIS
     Route: 030
     Dates: start: 20100304, end: 20100304
  2. AVONEX [Suspect]
     Route: 030
     Dates: start: 20100311, end: 20100311
  3. PERCOCET [Concomitant]
     Indication: INTERVERTEBRAL DISC PROTRUSION
     Route: 048

REACTIONS (15)
  - APHASIA [None]
  - CONVULSION [None]
  - DYSPNOEA [None]
  - FEELING HOT [None]
  - HEADACHE [None]
  - HYPOACUSIS [None]
  - INCONTINENCE [None]
  - MUSCULOSKELETAL DISORDER [None]
  - MYOCARDIAL INFARCTION [None]
  - PAIN [None]
  - PERIPHERAL COLDNESS [None]
  - PHOTOSENSITIVITY REACTION [None]
  - TRISMUS [None]
  - VISION BLURRED [None]
  - VOMITING [None]
